FAERS Safety Report 14494716 (Version 2)
Quarter: 2018Q1

REPORT INFORMATION
  Report Type: Report from Study
  Country: US (occurrence: US)
  Receive Date: 20180206
  Receipt Date: 20180213
  Transmission Date: 20180509
  Serious: No
  Sender: FDA-Public Use
  Company Number: PHEH2018US004742

PATIENT
  Sex: Male

DRUGS (1)
  1. COSENTYX [Suspect]
     Active Substance: SECUKINUMAB
     Indication: PRODUCT USED FOR UNKNOWN INDICATION
     Dosage: 300 MG, QW
     Route: 058

REACTIONS (7)
  - Pain in extremity [Unknown]
  - Drug ineffective [Unknown]
  - Nail discolouration [Unknown]
  - Nail disorder [Unknown]
  - Joint swelling [Unknown]
  - Bone pain [Unknown]
  - Peripheral swelling [Unknown]
